FAERS Safety Report 5702394-3 (Version None)
Quarter: 2008Q2

REPORT INFORMATION
  Report Type: 
  Country: None (occurrence: None)
  Receive Date: 20080411
  Receipt Date: 20080404
  Transmission Date: 20081010
  Serious: Yes (Other)
  Sender: FDA-Public Use
  Company Number: IT-AVENTIS-200812942GDDC

PATIENT
  Age: 60 Year
  Sex: Female

DRUGS (2)
  1. TAXOTERE [Suspect]
     Indication: BREAST CANCER
     Dosage: DOSE: UNK
     Route: 042
     Dates: start: 20080325, end: 20080325
  2. RANITIDINE [Concomitant]

REACTIONS (2)
  - CHOKING SENSATION [None]
  - LARYNGOSPASM [None]
